FAERS Safety Report 5675396-3 (Version None)
Quarter: 2008Q2

REPORT INFORMATION
  Report Type: 
  Country: None (occurrence: None)
  Receive Date: 20080307
  Receipt Date: 20070214
  Transmission Date: 20081010
  Serious: Yes (Death, Hospitalization)
  Sender: FDA-Public Use
  Company Number: US200702003507

PATIENT
  Age: 73 Year
  Sex: Female

DRUGS (9)
  1. GEMZAR [Suspect]
     Indication: OVARIAN FAILURE
     Dosage: 800 MG/M2, INTRAVENOUS
     Route: 042
     Dates: start: 20060105
  2. LORTAB [Concomitant]
  3. TYLOX (OXYCODONE HYDROCHLORIDE, PARACETAMOL) [Concomitant]
  4. ALBUTEROL (SALBUTAMOL) INHALER [Concomitant]
  5. BACTRIM 9SULFAMETHOXAZOLE, TRIMETHOPRIM) [Concomitant]
  6. OXYCONTIN [Concomitant]
  7. COMPAZINE [Concomitant]
  8. DURAGESIC-100 [Concomitant]
  9. EMEND (APREPITANT) [Concomitant]

REACTIONS (2)
  - CARDIAC FAILURE CONGESTIVE [None]
  - MALIGNANT NEOPLASM PROGRESSION [None]
